FAERS Safety Report 23518243 (Version 1)
Quarter: 2024Q1

REPORT INFORMATION
  Report Type: Spontaneous
  Country: US (occurrence: None)
  Receive Date: 20240213
  Receipt Date: 20240213
  Transmission Date: 20240410
  Serious: No
  Sender: FDA-Public Use
  Company Number: None

PATIENT
  Age: 43 Year
  Sex: Female
  Weight: 67.5 kg

DRUGS (1)
  1. DUPIXENT [Suspect]
     Active Substance: DUPILUMAB
     Indication: Dermatitis allergic
     Dosage: OTHER FREQUENCY : EVERY 2 WEEKS;?
     Route: 030

REACTIONS (2)
  - Pain of skin [None]
  - Lymphadenopathy [None]

NARRATIVE: CASE EVENT DATE: 20240201
